FAERS Safety Report 13241780 (Version 5)
Quarter: 2017Q3

REPORT INFORMATION
  Report Type: Spontaneous
  Country: US (occurrence: US)
  Receive Date: 20170217
  Receipt Date: 20170719
  Transmission Date: 20171127
  Serious: No
  Sender: FDA-Public Use
  Company Number: US-PFIZER INC-2017064054

PATIENT
  Age: 78 Year
  Weight: 77.98 kg

DRUGS (2)
  1. XELJANZ [Suspect]
     Active Substance: TOFACITINIB CITRATE
     Dosage: 5 MG, 2X/DAY
  2. XELJANZ [Suspect]
     Active Substance: TOFACITINIB CITRATE
     Indication: RHEUMATOID ARTHRITIS
     Dosage: 5 MG, DAILY

REACTIONS (6)
  - Constipation [Unknown]
  - Diarrhoea [Unknown]
  - Joint swelling [Not Recovered/Not Resolved]
  - Herpes virus infection [Unknown]
  - Arthralgia [Not Recovered/Not Resolved]
  - Condition aggravated [Unknown]
